FAERS Safety Report 19083989 (Version 2)
Quarter: 2021Q2

REPORT INFORMATION
  Report Type: Spontaneous
  Country: US (occurrence: US)
  Receive Date: 20210401
  Receipt Date: 20210427
  Transmission Date: 20210717
  Serious: Yes (Other)
  Sender: FDA-Public Use
  Company Number: US-ELI_LILLY_AND_COMPANY-US202103011963

PATIENT
  Age: 72 Year
  Sex: Female

DRUGS (1)
  1. TRULICITY [Suspect]
     Active Substance: DULAGLUTIDE
     Indication: PRODUCT USED FOR UNKNOWN INDICATION
     Dosage: 1.5 MG, UNKNOWN
     Route: 065
     Dates: start: 202004

REACTIONS (14)
  - Pain [Recovering/Resolving]
  - Hyperthyroidism [Recovering/Resolving]
  - Asthenia [Recovering/Resolving]
  - Fatigue [Recovering/Resolving]
  - Decreased interest [Recovering/Resolving]
  - Atrial fibrillation [Recovering/Resolving]
  - Exercise tolerance decreased [Recovering/Resolving]
  - Somnolence [Recovering/Resolving]
  - Thyroid mass [Recovering/Resolving]
  - Decreased activity [Recovering/Resolving]
  - Musculoskeletal discomfort [Recovering/Resolving]
  - Dyspnoea [Recovering/Resolving]
  - Gait disturbance [Recovering/Resolving]
  - Inappropriate schedule of product administration [Recovering/Resolving]

NARRATIVE: CASE EVENT DATE: 2020
